FAERS Safety Report 9888856 (Version 3)
Quarter: 2014Q2

REPORT INFORMATION
  Report Type: Spontaneous
  Country: US (occurrence: US)
  Receive Date: 20140211
  Receipt Date: 20140430
  Transmission Date: 20141212
  Serious: No
  Sender: FDA-Public Use
  Company Number: US-TEVA-461896USA

PATIENT
  Sex: Female

DRUGS (2)
  1. PARAGARD 380A [Suspect]
     Indication: CONTRACEPTION
     Route: 015
     Dates: end: 20140206
  2. PARAGARD 380A [Suspect]
     Route: 015

REACTIONS (1)
  - Device breakage [Recovered/Resolved]
